FAERS Safety Report 17564754 (Version 1)
Quarter: 2020Q1

REPORT INFORMATION
  Report Type: Spontaneous
  Country: CA (occurrence: CA)
  Receive Date: 20200320
  Receipt Date: 20200320
  Transmission Date: 20200409
  Serious: Yes (Other)
  Sender: FDA-Public Use
  Company Number: CA-SAMSUNG BIOEPIS-SB-2020-09656

PATIENT
  Age: 57 Year
  Sex: Female

DRUGS (2)
  1. INFLIXIMAB [Suspect]
     Active Substance: INFLIXIMAB
     Indication: CROHN^S DISEASE
     Route: 042
  2. PENTASA [Concomitant]
     Active Substance: MESALAMINE
     Indication: PRODUCT USED FOR UNKNOWN INDICATION
     Route: 048

REACTIONS (13)
  - Fibromyalgia [Unknown]
  - Hypoaesthesia [Unknown]
  - Blood pressure fluctuation [Unknown]
  - Pain [Unknown]
  - Tooth infection [Unknown]
  - Burning sensation [Unknown]
  - Condition aggravated [Unknown]
  - Dry mouth [Unknown]
  - Inappropriate schedule of product administration [Unknown]
  - Rheumatoid arthritis [Unknown]
  - Intestinal obstruction [Unknown]
  - Osteitis [Unknown]
  - C-reactive protein increased [Unknown]
